FAERS Safety Report 5084713-7 (Version None)
Quarter: 2006Q3

REPORT INFORMATION
  Report Type: 
  Country: None (occurrence: None)
  Receive Date: 20060814
  Receipt Date: 20060801
  Transmission Date: 20061208
  Serious: Yes (Death, Hospitalization)
  Sender: FDA-Public Use
  Company Number: AR200607004961

PATIENT
  Age: 74 Year
  Sex: Male
  Weight: 72 kg

DRUGS (6)
  1. CISPLATIN [Suspect]
     Indication: NON-SMALL CELL LUNG CANCER
     Dosage: 50 MG/M2, OTHER INTRAVENOUS
     Route: 042
     Dates: start: 20060417
  2. ETOPOSIDE [Suspect]
     Indication: NON-SMALL CELL LUNG CANCER
     Dosage: 50 MG/M2, OTHER INTRAVENOUS
     Route: 042
     Dates: start: 20060417
  3. RADIATION (RADIATION) [Suspect]
     Indication: NON-SMALL CELL LUNG CANCER
     Dosage: 180 U, OTHER;
     Dates: start: 20060417
  4. ENALAPRIL MALEATE [Concomitant]
  5. PROPOXYPHENE HCL [Concomitant]
  6. DIPYRONE (METAMIZOLE SODIUM) [Concomitant]

REACTIONS (3)
  - PNEUMONIA [None]
  - RESPIRATORY FAILURE [None]
  - RESPIRATORY TRACT INFECTION [None]
